FAERS Safety Report 13477112 (Version 1)
Quarter: 2017Q2

REPORT INFORMATION
  Report Type: Spontaneous
  Country: JP (occurrence: JP)
  Receive Date: 20170425
  Receipt Date: 20170425
  Transmission Date: 20170830
  Serious: Yes (Death, Hospitalization)
  Sender: FDA-Public Use
  Company Number: JP-BAYER-2017-045983

PATIENT
  Age: 56 Year
  Sex: Male
  Weight: 70 kg

DRUGS (2)
  1. NEXAVAR [Suspect]
     Active Substance: SORAFENIB
     Indication: HEPATOCELLULAR CARCINOMA
     Dosage: 400 MG, QD
     Route: 048
     Dates: start: 20160913, end: 20170217
  2. BUFFERIN A (ASPIRIN\HYDROTALCITE) [Suspect]
     Active Substance: ASPIRIN\HYDROTALCITE
     Dosage: DAILY DOSE 81 MG
     Route: 048
     Dates: start: 20140527, end: 20170228

REACTIONS (6)
  - Jaundice [Fatal]
  - Pyrexia [Recovering/Resolving]
  - Melaena [Recovering/Resolving]
  - Hepatic failure [Fatal]
  - Ascites [Not Recovered/Not Resolved]
  - Epistaxis [Recovering/Resolving]

NARRATIVE: CASE EVENT DATE: 20170116
